FAERS Safety Report 4862248-1 (Version None)
Quarter: 2005Q4

REPORT INFORMATION
  Report Type: 
  Country: None (occurrence: None)
  Receive Date: 20051201
  Receipt Date: 20050901
  Transmission Date: 20060501
  Serious: No
  Sender: FDA-Public Use
  Company Number: 2005PV001533

PATIENT
  Age: 84 Year
  Sex: Female
  Weight: 88.4514 kg

DRUGS (6)
  1. BYETTA [Suspect]
     Indication: DIABETES MELLITUS NON-INSULIN-DEPENDENT
     Dosage: 5 MCG; TID; SC
     Route: 058
     Dates: start: 20050802
  2. LANTUS [Concomitant]
  3. PRECOSE [Concomitant]
  4. STARLIX [Concomitant]
  5. AMARYL [Concomitant]
  6. PROCRIT [Concomitant]

REACTIONS (2)
  - NAUSEA [None]
  - WEIGHT DECREASED [None]
